FAERS Safety Report 5081812-0 (Version None)
Quarter: 2006Q3

REPORT INFORMATION
  Report Type: 
  Country: None (occurrence: None)
  Receive Date: 20060816
  Receipt Date: 20060809
  Transmission Date: 20061208
  Serious: Yes (Other)
  Sender: FDA-Public Use
  Company Number: GB-GLAXOSMITHKLINE-B0434087A

PATIENT

DRUGS (2)
  1. COMBIVIR [Suspect]
     Dosage: 2UNIT PER DAY
  2. VIRAMUNE [Suspect]
     Dosage: 400MG PER DAY

REACTIONS (3)
  - ASCITES [None]
  - DRUG EXPOSURE DURING PREGNANCY [None]
  - PERICARDIAL EFFUSION [None]
